FAERS Safety Report 18026582 (Version 2)
Quarter: 2020Q3

REPORT INFORMATION
  Report Type: Report from Study
  Country: US (occurrence: US)
  Receive Date: 20200715
  Receipt Date: 20200820
  Transmission Date: 20201103
  Serious: Yes (Hospitalization, Other)
  Sender: FDA-Public Use
  Company Number: US-SHIRE-US201931447

PATIENT
  Age: 66 Year
  Sex: Female
  Weight: 60 kg

DRUGS (10)
  1. TEDUGLUTIDE [Suspect]
     Active Substance: TEDUGLUTIDE
     Indication: SHORT-BOWEL SYNDROME
     Dosage: 2.93 MILLIGRAM (0.05 MILLIGRAM/KILOGRAM DAILU DOSE), 7 DOSES PER WEEK
     Route: 065
     Dates: start: 20180826, end: 20190530
  2. MOXIFLOXACIN. [Concomitant]
     Active Substance: MOXIFLOXACIN
     Indication: BACTERAEMIA
     Route: 042
  3. TEDUGLUTIDE [Suspect]
     Active Substance: TEDUGLUTIDE
     Indication: SHORT-BOWEL SYNDROME
     Dosage: 2.93 MILLIGRAM (0.05 MILLIGRAM/KILOGRAM DAILU DOSE), 7 DOSES PER WEEK
     Route: 065
     Dates: start: 20180826, end: 20190530
  4. TEDUGLUTIDE [Suspect]
     Active Substance: TEDUGLUTIDE
     Dosage: 2.93 MILLIGRAM (0.05 MILLIGRAM/KILOGRAM DAILU DOSE), 7 DOSES PER WEEK
     Route: 065
     Dates: start: 20190605
  5. AZITHROMYCIN ANHYDROUS. [Concomitant]
     Active Substance: AZITHROMYCIN ANHYDROUS
     Indication: BACTERAEMIA
     Route: 048
  6. TEDUGLUTIDE [Suspect]
     Active Substance: TEDUGLUTIDE
     Indication: SHORT-BOWEL SYNDROME
     Dosage: 2.93 MILLIGRAM (0.05 MILLIGRAM/KILOGRAM DAILU DOSE), 7 DOSES PER WEEK
     Route: 065
     Dates: start: 20180826, end: 20190530
  7. TEDUGLUTIDE [Suspect]
     Active Substance: TEDUGLUTIDE
     Indication: SHORT-BOWEL SYNDROME
     Dosage: 2.93 MILLIGRAM (0.05 MILLIGRAM/KILOGRAM DAILU DOSE), 7 DOSES PER WEEK
     Route: 065
     Dates: start: 20180826, end: 20190530
  8. TEDUGLUTIDE [Suspect]
     Active Substance: TEDUGLUTIDE
     Dosage: 2.93 MILLIGRAM (0.05 MILLIGRAM/KILOGRAM DAILU DOSE), 7 DOSES PER WEEK
     Route: 065
     Dates: start: 20190605
  9. TEDUGLUTIDE [Suspect]
     Active Substance: TEDUGLUTIDE
     Dosage: 2.93 MILLIGRAM (0.05 MILLIGRAM/KILOGRAM DAILU DOSE), 7 DOSES PER WEEK
     Route: 065
     Dates: start: 20190605
  10. TEDUGLUTIDE [Suspect]
     Active Substance: TEDUGLUTIDE
     Dosage: 2.93 MILLIGRAM (0.05 MILLIGRAM/KILOGRAM DAILU DOSE), 7 DOSES PER WEEK
     Route: 065
     Dates: start: 20190605

REACTIONS (4)
  - Bacteraemia [Recovered/Resolved]
  - Rectal polyp [Not Recovered/Not Resolved]
  - Duodenal polyp [Not Recovered/Not Resolved]
  - Intraductal papillary mucinous neoplasm [Not Recovered/Not Resolved]

NARRATIVE: CASE EVENT DATE: 20190830
